FAERS Safety Report 14745663 (Version 1)
Quarter: 2018Q2

REPORT INFORMATION
  Report Type: Spontaneous
  Country: US (occurrence: US)
  Receive Date: 20180411
  Receipt Date: 20180411
  Transmission Date: 20180711
  Serious: Yes (Other)
  Sender: FDA-Public Use
  Company Number: US-MYLANLABS-2018M1022669

PATIENT
  Age: 13 Year
  Sex: Female

DRUGS (3)
  1. QUETIAPINE. [Suspect]
     Active Substance: QUETIAPINE
     Route: 065
  2. OLANZAPINE. [Suspect]
     Active Substance: OLANZAPINE
     Indication: DRUG THERAPY
     Dosage: INITIAL DOSAGE NOT STATED; HOWEVER, HER MOTHER WAS GIVING THE PATIENT ADDITIONAL OLANZAPINE AS NE...
     Route: 065
  3. RISPERIDONE. [Suspect]
     Active Substance: RISPERIDONE
     Indication: DRUG THERAPY
     Route: 065

REACTIONS (3)
  - Hyperglycaemia [Not Recovered/Not Resolved]
  - Polyuria [Unknown]
  - Polydipsia [Unknown]
